FAERS Safety Report 8140456-4 (Version None)
Quarter: 2012Q1

REPORT INFORMATION
  Report Type: 
  Country: None (occurrence: None)
  Receive Date: 20120216
  Receipt Date: 20120210
  Transmission Date: 20120608
  Serious: Yes (Other)
  Sender: FDA-Public Use
  Company Number: GB-PFIZER INC-2012037811

PATIENT
  Age: 56 Year
  Sex: Female

DRUGS (4)
  1. HYGROTON [Suspect]
  2. DIOVAN [Suspect]
     Dosage: 320 MG, UNK
  3. LISADOR [Suspect]
     Dosage: 40 DROPS EVERY 8 HOURS
  4. ALDACTONE [Suspect]

REACTIONS (3)
  - ACCIDENT AT HOME [None]
  - HYPERSENSITIVITY [None]
  - LOWER LIMB FRACTURE [None]
